FAERS Safety Report 7878093-9 (Version None)
Quarter: 2011Q4

REPORT INFORMATION
  Report Type: 
  Country: None (occurrence: None)
  Receive Date: 20111101
  Receipt Date: 20111025
  Transmission Date: 20120403
  Serious: No
  Sender: FDA-Public Use
  Company Number: US-BIOGENIDEC-2011BI028740

PATIENT
  Age: 50 Year
  Sex: Female

DRUGS (3)
  1. HYDROCODONE BITARTRATE [Concomitant]
     Indication: TRIGEMINAL NEURALGIA
     Dates: start: 20080101
  2. TYSABRI [Suspect]
     Indication: MULTIPLE SCLEROSIS
     Route: 042
     Dates: start: 20110216
  3. TEMAZEPAM [Concomitant]
     Indication: INSOMNIA
     Dates: start: 20100101

REACTIONS (7)
  - TRIGEMINAL NEURALGIA [None]
  - INSOMNIA [None]
  - BACK PAIN [None]
  - IMPAIRED HEALING [None]
  - HYPOAESTHESIA [None]
  - FALL [None]
  - UPPER LIMB FRACTURE [None]
